FAERS Safety Report 11842771 (Version 1)
Quarter: 2015Q4

REPORT INFORMATION
  Report Type: Spontaneous
  Country: None (occurrence: FR)
  Receive Date: 20151216
  Receipt Date: 20151216
  Transmission Date: 20160305
  Serious: Yes (Death)
  Sender: FDA-Public Use
  Company Number: FR-PIERRE FABRE-1045573

PATIENT
  Age: 7 Year
  Sex: Female

DRUGS (14)
  1. NAVELBINE [Suspect]
     Active Substance: VINORELBINE TARTRATE
     Route: 042
     Dates: start: 20100930
  2. UROMITEXAN [Suspect]
     Active Substance: MESNA
     Route: 042
     Dates: start: 20100812
  3. CISPLATIN. [Suspect]
     Active Substance: CISPLATIN
     Route: 065
     Dates: start: 201005
  4. DOXORUBICIN HYDROCHLORIDE. [Suspect]
     Active Substance: DOXORUBICIN HYDROCHLORIDE
     Route: 042
  5. ZELITREX [Concomitant]
     Active Substance: VALACYCLOVIR HYDROCHLORIDE
     Route: 065
     Dates: start: 2006
  6. BACTRIM [Concomitant]
     Active Substance: SULFAMETHOXAZOLE\TRIMETHOPRIM
     Route: 065
     Dates: start: 2006
  7. LAROXYL [Concomitant]
     Active Substance: AMITRIPTYLINE
     Route: 065
  8. CYCLOPHOSPHAMIDE. [Suspect]
     Active Substance: CYCLOPHOSPHAMIDE
     Route: 042
     Dates: start: 20100930
  9. METHOTREXATE SODIUM. [Suspect]
     Active Substance: METHOTREXATE SODIUM
     Dates: start: 20100316
  10. ADRIAMYCIN [Suspect]
     Active Substance: DOXORUBICIN HYDROCHLORIDE
     Route: 065
     Dates: start: 201005
  11. LAMICTAL [Concomitant]
     Active Substance: LAMOTRIGINE
     Route: 065
  12. HOLOXAN [Suspect]
     Active Substance: IFOSFAMIDE
     Route: 042
     Dates: start: 201004
  13. ETOPOSIDE. [Suspect]
     Active Substance: ETOPOSIDE
     Route: 042
     Dates: start: 201004
  14. CISPLATIN MYLAN [Suspect]
     Active Substance: CISPLATIN
     Route: 042
     Dates: start: 20100811, end: 20100811

REACTIONS (1)
  - Death [Fatal]
